FAERS Safety Report 7457010-X (Version None)
Quarter: 2011Q2

REPORT INFORMATION
  Report Type: 
  Country: None (occurrence: None)
  Receive Date: 20110504
  Receipt Date: 20110419
  Transmission Date: 20111010
  Serious: Yes (Life-Threatening, Other)
  Sender: FDA-Public Use
  Company Number: US-JNJFOC-20110411157

PATIENT
  Age: 36 Year
  Sex: Male

DRUGS (3)
  1. ULTRAM [Suspect]
     Indication: PRODUCT USED FOR UNKNOWN INDICATION
     Route: 065
  2. UNKNOWN MEDICATION [Suspect]
     Indication: MUSCLE RELAXANT THERAPY
     Route: 065
  3. TIZANIDINE [Suspect]
     Indication: MUSCLE RELAXANT THERAPY
     Route: 065

REACTIONS (10)
  - TOXICITY TO VARIOUS AGENTS [None]
  - BLOOD POTASSIUM DECREASED [None]
  - PALLOR [None]
  - COLD SWEAT [None]
  - BODY TEMPERATURE DECREASED [None]
  - HAEMOGLOBIN DECREASED [None]
  - MULTIPLE DRUG OVERDOSE [None]
  - BRADYCARDIA [None]
  - HYPERTENSION [None]
  - UNRESPONSIVE TO STIMULI [None]
